FAERS Safety Report 8848983 (Version 2)
Quarter: 2012Q4

REPORT INFORMATION
  Report Type: Spontaneous
  Country: NL (occurrence: None)
  Receive Date: 20121016
  Receipt Date: 20121023
  Transmission Date: 20130627
  Serious: Yes (Death)
  Sender: FDA-Public Use
  Company Number: 2012-4598

PATIENT
  Age: 83 Year
  Sex: Female

DRUGS (4)
  1. SOMATULINE AUTOGEL [Suspect]
     Indication: ACROMEGALY
     Dosage: (90 mg. 1 in 28 days)
     Route: 058
     Dates: start: 20070424, end: 20120924
  2. SOMATULINE AUTOGEL [Suspect]
     Indication: ACROMEGALY
  3. SOMATULINE AUTOGEL [Suspect]
     Indication: ACROMEGALY
  4. SOMAVERT [Concomitant]

REACTIONS (1)
  - Death [None]
